APPROVED DRUG PRODUCT: NEXIUM
Active Ingredient: ESOMEPRAZOLE MAGNESIUM
Strength: EQ 5MG BASE/PACKET
Dosage Form/Route: FOR SUSPENSION, DELAYED RELEASE;ORAL
Application: N021957 | Product #004 | TE Code: AB
Applicant: ASTRAZENECA PHARMACEUTICALS LP
Approved: Dec 15, 2011 | RLD: Yes | RS: No | Type: RX